FAERS Safety Report 9602002 (Version 1)
Quarter: 2013Q4

REPORT INFORMATION
  Report Type: Spontaneous
  Country: FR (occurrence: FR)
  Receive Date: 20131007
  Receipt Date: 20131007
  Transmission Date: 20140711
  Serious: Yes (Hospitalization)
  Sender: FDA-Public Use
  Company Number: PHHY2013FR111537

PATIENT
  Age: 36 Year
  Sex: Female

DRUGS (4)
  1. LAMISIL [Suspect]
     Indication: FUNGAL INFECTION
     Dosage: UNK UKN, UNK
  2. LAMOTRIGINE [Suspect]
     Indication: FUNGAL INFECTION
     Dosage: 1 DF, UNK
     Route: 048
     Dates: start: 20130810
  3. LAMOTRIGINE [Suspect]
     Dosage: 1 DF, UNK
     Route: 048
     Dates: start: 20130825, end: 20130825
  4. IBUPROFEN [Concomitant]
     Dosage: 1 DF, UNK
     Route: 048
     Dates: start: 20130810

REACTIONS (3)
  - Generalised erythema [Recovered/Resolved]
  - Urticaria [Recovered/Resolved]
  - Face oedema [Recovered/Resolved]
